FAERS Safety Report 20829456 (Version 2)
Quarter: 2022Q2

REPORT INFORMATION
  Report Type: Spontaneous
  Country: US (occurrence: US)
  Receive Date: 20220513
  Receipt Date: 20220527
  Transmission Date: 20220720
  Serious: Yes (Other)
  Sender: FDA-Public Use
  Company Number: US-CHIESI-2022CHF02180

PATIENT
  Sex: Female

DRUGS (1)
  1. REVCOVI [Suspect]
     Active Substance: ELAPEGADEMASE-LVLR
     Indication: Combined immunodeficiency
     Dosage: 6 ML (9.6 MG) ONCE WEEKLY
     Route: 030
     Dates: start: 20210810

REACTIONS (1)
  - Thyroid cancer [Not Recovered/Not Resolved]
